FAERS Safety Report 14696274 (Version 1)
Quarter: 2018Q1

REPORT INFORMATION
  Report Type: Spontaneous
  Country: CA (occurrence: CA)
  Receive Date: 20180329
  Receipt Date: 20180329
  Transmission Date: 20180509
  Serious: Yes (Life-Threatening)
  Sender: FDA-Public Use
  Company Number: CA-TEVA-2018-CA-874722

PATIENT
  Age: 3 Year
  Sex: Male
  Weight: 8.63 kg

DRUGS (6)
  1. CEFTRIAXONE FOR INJECTION USP [Concomitant]
     Active Substance: CEFTRIAXONE
  2. MIDAZOLAM [Concomitant]
     Active Substance: MIDAZOLAM HYDROCHLORIDE
  3. TYLENOL [Concomitant]
     Active Substance: ACETAMINOPHEN
  4. MORPHINE [Concomitant]
     Active Substance: MORPHINE
  5. SALBUTAMOL [Concomitant]
     Active Substance: ALBUTEROL
  6. DEXAMETHASONE. [Suspect]
     Active Substance: DEXAMETHASONE
     Indication: CROUP INFECTIOUS
     Route: 042

REACTIONS (2)
  - Gastrointestinal haemorrhage [Recovered/Resolved]
  - Gastric ulcer [Recovered/Resolved]
